FAERS Safety Report 9484778 (Version 1)
Quarter: 2013Q3

REPORT INFORMATION
  Report Type: Report from Study
  Country: US (occurrence: US)
  Receive Date: 20130828
  Receipt Date: 20130828
  Transmission Date: 20140515
  Serious: Yes (Hospitalization)
  Sender: FDA-Public Use
  Company Number: US-GLAXOSMITHKLINE-A1039379A

PATIENT
  Age: 53 Year
  Sex: Male

DRUGS (5)
  1. DABRAFENIB [Suspect]
     Indication: METASTATIC MALIGNANT MELANOMA
     Dosage: 150MG TWICE PER DAY
     Route: 048
     Dates: start: 20130806
  2. TRAMETINIB [Suspect]
     Indication: METASTATIC MALIGNANT MELANOMA
     Dosage: 2MG PER DAY
     Route: 048
     Dates: start: 20130806
  3. NORVASC [Concomitant]
     Indication: HYPERTENSION
     Dosage: 10MG PER DAY
     Route: 048
  4. HYDRALAZINE [Concomitant]
     Indication: HYPERTENSION
     Dosage: 75MG THREE TIMES PER DAY
     Dates: start: 20130813
  5. TYLENOL [Concomitant]
     Dosage: 500MG AS REQUIRED
     Dates: start: 20130814

REACTIONS (2)
  - Rhabdomyolysis [Unknown]
  - Pyrexia [Unknown]
